FAERS Safety Report 24911754 (Version 1)
Quarter: 2025Q1

REPORT INFORMATION
  Report Type: Spontaneous
  Country: GB (occurrence: GB)
  Receive Date: 20250131
  Receipt Date: 20250131
  Transmission Date: 20250408
  Serious: Yes (Life-Threatening, Hospitalization, Other)
  Sender: RANBAXY
  Company Number: GB-SUN PHARMACEUTICAL INDUSTRIES LTD-2025R1-491493

PATIENT
  Age: 76 Year
  Sex: Female

DRUGS (7)
  1. CLARITHROMYCIN [Suspect]
     Active Substance: CLARITHROMYCIN
     Indication: Antibiotic therapy
     Dosage: 500 MILLIGRAM, BID
     Route: 048
  2. PENICILLIN G [Suspect]
     Active Substance: PENICILLIN G
     Indication: Tetanus
     Route: 042
  3. DIAZEPAM [Suspect]
     Active Substance: DIAZEPAM
     Indication: Tetanus
     Route: 042
  4. METRONIDAZOLE [Suspect]
     Active Substance: METRONIDAZOLE
     Indication: Tetanus
     Route: 042
  5. MAGNESIUM [Suspect]
     Active Substance: MAGNESIUM
     Indication: Tetanus
     Route: 042
  6. SODIUM CHLORIDE [Suspect]
     Active Substance: SODIUM CHLORIDE
     Indication: Tetanus
     Route: 065
  7. REVAXIS [Suspect]
     Active Substance: DIPHTHERIA AND TETANUS TOXOIDS AND POLIOVIRUS VACCINE ANTIGENS
     Indication: Tetanus
     Route: 030

REACTIONS (1)
  - Condition aggravated [Unknown]
